FAERS Safety Report 5046844-7 (Version None)
Quarter: 2006Q2

REPORT INFORMATION
  Report Type: 
  Country: None (occurrence: None)
  Receive Date: 20060630
  Receipt Date: 20060621
  Transmission Date: 20061013
  Serious: Yes (Other)
  Sender: FDA-Public Use
  Company Number: 2006AP000475

PATIENT
  Age: 76 Year
  Sex: Male

DRUGS (6)
  1. APO-DILTIAZ CD (DILTIAZEM HYDROCHLORIDE) [Suspect]
     Indication: HYPERTENSION
     Dosage: SEE IMAGE
     Route: 048
     Dates: start: 20060112
  2. APO-DILTIAZ CD (DILTIAZEM HYDROCHLORIDE) [Suspect]
     Indication: HYPERTENSION
     Dosage: SEE IMAGE
     Route: 048
     Dates: start: 20060112
  3. APO-DILTIAZ CD (DILTIAZEM HYDROCHLORIDE) [Suspect]
     Indication: HYPERTENSION
     Dosage: SEE IMAGE
     Route: 048
     Dates: start: 20060127
  4. ATORVASTATIN CALCIUM [Concomitant]
  5. LACTULOSE [Concomitant]
  6. HYDROCHLORIC ACID [Concomitant]

REACTIONS (9)
  - ABNORMAL DREAMS [None]
  - CONSTIPATION [None]
  - DIZZINESS [None]
  - DYSPNOEA [None]
  - JOINT SWELLING [None]
  - MYALGIA [None]
  - PLATELET COUNT DECREASED [None]
  - RED BLOOD CELL COUNT DECREASED [None]
  - VISUAL DISTURBANCE [None]
